FAERS Safety Report 25899959 (Version 2)
Quarter: 2025Q4

REPORT INFORMATION
  Report Type: Report from Study
  Country: CN (occurrence: CN)
  Receive Date: 20251009
  Receipt Date: 20251105
  Transmission Date: 20260117
  Serious: Yes (Other)
  Sender: ROCHE
  Company Number: CN-ROCHE-10000356143

PATIENT
  Age: 75 Year
  Sex: Male
  Weight: 60 kg

DRUGS (39)
  1. POLATUZUMAB VEDOTIN [Suspect]
     Active Substance: POLATUZUMAB VEDOTIN
     Indication: Diffuse large B-cell lymphoma
     Route: 042
     Dates: start: 20250410, end: 20250410
  2. POLATUZUMAB VEDOTIN [Suspect]
     Active Substance: POLATUZUMAB VEDOTIN
     Route: 042
     Dates: start: 20250430, end: 20250430
  3. ZUBERITAMAB [Suspect]
     Active Substance: ZUBERITAMAB
     Indication: Diffuse large B-cell lymphoma
     Route: 042
     Dates: start: 20250412, end: 20250412
  4. ZUBERITAMAB [Suspect]
     Active Substance: ZUBERITAMAB
     Route: 042
     Dates: start: 20250413, end: 20250413
  5. ZUBERITAMAB [Suspect]
     Active Substance: ZUBERITAMAB
     Route: 042
     Dates: start: 20250411, end: 20250411
  6. CYCLOPHOSPHAMIDE [Suspect]
     Active Substance: CYCLOPHOSPHAMIDE
     Indication: Diffuse large B-cell lymphoma
     Route: 042
     Dates: start: 20250501, end: 20250501
  7. CYCLOPHOSPHAMIDE [Suspect]
     Active Substance: CYCLOPHOSPHAMIDE
     Route: 042
     Dates: start: 20250414, end: 20250414
  8. DEXAMETHASONE [Suspect]
     Active Substance: DEXAMETHASONE
     Indication: Diffuse large B-cell lymphoma
     Route: 042
     Dates: start: 20250411, end: 20250413
  9. DEXAMETHASONE SODIUM PHOSPHATE [Suspect]
     Active Substance: DEXAMETHASONE SODIUM PHOSPHATE
     Indication: Diffuse large B-cell lymphoma
     Route: 042
     Dates: start: 20250411, end: 20250413
  10. DEXAMETHASONE SODIUM PHOSPHATE [Suspect]
     Active Substance: DEXAMETHASONE SODIUM PHOSPHATE
     Route: 042
     Dates: start: 20250430, end: 20250430
  11. DEXAMETHASONE SODIUM PHOSPHATE [Suspect]
     Active Substance: DEXAMETHASONE SODIUM PHOSPHATE
     Route: 042
     Dates: start: 20250523, end: 20250524
  12. DEXAMETHASONE SODIUM PHOSPHATE [Suspect]
     Active Substance: DEXAMETHASONE SODIUM PHOSPHATE
     Route: 042
     Dates: start: 20250618, end: 20250618
  13. DEXAMETHASONE SODIUM PHOSPHATE [Suspect]
     Active Substance: DEXAMETHASONE SODIUM PHOSPHATE
     Route: 042
     Dates: start: 20250704, end: 20250704
  14. DEXAMETHASONE SODIUM PHOSPHATE [Suspect]
     Active Substance: DEXAMETHASONE SODIUM PHOSPHATE
     Route: 042
     Dates: start: 20250707, end: 20250707
  15. DEXAMETHASONE SODIUM PHOSPHATE [Suspect]
     Active Substance: DEXAMETHASONE SODIUM PHOSPHATE
     Route: 042
     Dates: start: 20250801, end: 20250801
  16. METFORMIN HYDROCHLORIDE [Concomitant]
     Active Substance: METFORMIN HYDROCHLORIDE
  17. ACARBOSE [Concomitant]
     Active Substance: ACARBOSE
  18. OXYCODONE AND ACETAMINOPHEN [Concomitant]
     Active Substance: ACETAMINOPHEN\OXYCODONE HYDROCHLORIDE
  19. FEBUXOSTAT [Concomitant]
     Active Substance: FEBUXOSTAT
  20. SODIUM BICARBONATE [Concomitant]
     Active Substance: SODIUM BICARBONATE
  21. POTASSIUM CHLORIDE [Concomitant]
     Active Substance: POTASSIUM CHLORIDE
  22. ACETAMINOPHEN [Concomitant]
     Active Substance: ACETAMINOPHEN
  23. ESTAZOLAM [Concomitant]
     Active Substance: ESTAZOLAM
  24. MESNA [Concomitant]
     Active Substance: MESNA
  25. FUROSEMIDE [Concomitant]
     Active Substance: FUROSEMIDE
  26. TORSEMIDE [Concomitant]
     Active Substance: TORSEMIDE
  27. REPAGLINIDE [Concomitant]
     Active Substance: REPAGLINIDE
  28. INSULIN NOS [Concomitant]
     Active Substance: INSULIN NOS
  29. Tropisetron Hydrochloride Injection [Concomitant]
  30. LIDOCAINE HYDROCHLORIDE [Concomitant]
     Active Substance: LIDOCAINE HYDROCHLORIDE
  31. Calcium Carbonate Tablets [Concomitant]
  32. PIPERACILLIN SODIUM\TAZOBACTAM SODIUM [Concomitant]
     Active Substance: PIPERACILLIN SODIUM\TAZOBACTAM SODIUM
  33. SULFAMETHOXAZOLE [Concomitant]
     Active Substance: SULFAMETHOXAZOLE
  34. Insulin Glargine Injection [Concomitant]
  35. Smectite Powder [Concomitant]
  36. DEXTROSE [Concomitant]
     Active Substance: DEXTROSE MONOHYDRATE
  37. Glycerin Enema [Concomitant]
  38. ANF-RHO [Concomitant]
     Active Substance: ANF-RHO
  39. ANF-RHO [Concomitant]
     Active Substance: ANF-RHO

REACTIONS (2)
  - Lymphocyte count decreased [Not Recovered/Not Resolved]
  - Anaemia [Recovered/Resolved]

NARRATIVE: CASE EVENT DATE: 20250414
